FAERS Safety Report 21575067 (Version 3)
Quarter: 2023Q1

REPORT INFORMATION
  Report Type: Report from Study
  Country: US (occurrence: US)
  Receive Date: 20221110
  Receipt Date: 20230216
  Transmission Date: 20230418
  Serious: No
  Sender: FDA-Public Use
  Company Number: US-002147023-NVSC2022US252656

PATIENT
  Sex: Male

DRUGS (2)
  1. ENTRESTO [Suspect]
     Active Substance: SACUBITRIL\VALSARTAN
     Indication: Product used for unknown indication
     Dosage: 1 DOSAGE FORM, BID (24/26 MG)
     Route: 048
     Dates: start: 20221104
  2. SOTALOL [Suspect]
     Active Substance: SOTALOL
     Indication: Arrhythmia
     Dosage: UNK
     Route: 065

REACTIONS (3)
  - Urine flow decreased [Unknown]
  - Sleep apnoea syndrome [Recovering/Resolving]
  - Somnolence [Unknown]
